FAERS Safety Report 10592666 (Version 2)
Quarter: 2014Q4

REPORT INFORMATION
  Report Type: Spontaneous
  Country: GB (occurrence: GB)
  Receive Date: 20141119
  Receipt Date: 20141208
  Transmission Date: 20150529
  Serious: Yes (Other)
  Sender: FDA-Public Use
  Company Number: GB-ENDO PHARMACEUTICALS INC.-AVEE20140304

PATIENT
  Sex: Male

DRUGS (4)
  1. AVEED [Suspect]
     Active Substance: TESTOSTERONE UNDECANOATE
     Indication: PRODUCT USED FOR UNKNOWN INDICATION
     Dosage: UNKNOWN
     Route: 065
     Dates: start: 20140722, end: 201407
  2. SUSTANON [Suspect]
     Active Substance: TESTOSTERONE DECANOATE\TESTOSTERONE ISOCAPROATE\TESTOSTERONE PHENYLPROPIONATE\TESTOSTERONE PROPIONATE
     Indication: PRODUCT USED FOR UNKNOWN INDICATION
     Dosage: UNKNOWN
     Route: 065
     Dates: start: 1974, end: 201405
  3. ASPIRIN. [Concomitant]
     Active Substance: ASPIRIN
     Indication: PRODUCT USED FOR UNKNOWN INDICATION
     Dosage: UNKNOWN
     Route: 065
  4. METHOCARBAMOL. [Concomitant]
     Active Substance: METHOCARBAMOL
     Indication: PRODUCT USED FOR UNKNOWN INDICATION
     Dosage: UNKNOWN
     Route: 065

REACTIONS (6)
  - Adverse event [Unknown]
  - Hyperhidrosis [Unknown]
  - Loss of consciousness [Unknown]
  - Cerebrovascular accident [Unknown]
  - Cough [Unknown]
  - Alopecia [Unknown]

NARRATIVE: CASE EVENT DATE: 2014
